FAERS Safety Report 8060364-7 (Version None)
Quarter: 2012Q1

REPORT INFORMATION
  Report Type: 
  Country: None (occurrence: None)
  Receive Date: 20120120
  Receipt Date: 20120111
  Transmission Date: 20120608
  Serious: Yes (Other)
  Sender: FDA-Public Use
  Company Number: GXBR2012US000481

PATIENT
  Sex: Female
  Weight: 72.562 kg

DRUGS (1)
  1. LEVONORGESTREL AND ETHINYL ESTRADIOL [Suspect]
     Indication: CONTRACEPTION
     Dosage: LEVONORGESTREL 0.15MG AND ETHINYL ESTRADIOL 0.03MG, QD
     Route: 048
     Dates: start: 20111101, end: 20120110

REACTIONS (7)
  - HYPOAESTHESIA [None]
  - COLD SWEAT [None]
  - LOSS OF CONSCIOUSNESS [None]
  - BODY TEMPERATURE DECREASED [None]
  - FEELING HOT [None]
  - PALLOR [None]
  - PRESYNCOPE [None]
